FAERS Safety Report 9415069 (Version 1)
Quarter: 2013Q3

REPORT INFORMATION
  Report Type: Spontaneous
  Country: US (occurrence: US)
  Receive Date: 20130723
  Receipt Date: 20130723
  Transmission Date: 20140515
  Serious: Yes (Other)
  Sender: FDA-Public Use
  Company Number: US-BAXTER-2013BAX027342

PATIENT
  Age: 26 Year
  Sex: Female

DRUGS (6)
  1. IFEX [Suspect]
     Indication: ASTHENIA
     Dosage: 23.4 G/M2
     Route: 065
  2. IFEX [Suspect]
     Indication: POLYDIPSIA
  3. IFEX [Suspect]
     Indication: POLYURIA
  4. IFEX [Suspect]
     Indication: PYREXIA
  5. IFEX [Suspect]
     Indication: HYPOVOLAEMIA
  6. IFEX [Suspect]
     Indication: PANCYTOPENIA

REACTIONS (2)
  - Fanconi syndrome [Not Recovered/Not Resolved]
  - Nephrogenic diabetes insipidus [Recovered/Resolved]
